FAERS Safety Report 23330622 (Version 2)
Quarter: 2023Q4

REPORT INFORMATION
  Report Type: Other
  Country: PT (occurrence: PT)
  Receive Date: 20231222
  Receipt Date: 20231228
  Transmission Date: 20240110
  Serious: Yes (Other)
  Sender: FDA-Public Use
  Company Number: None

PATIENT
  Age: 52 Year
  Sex: Male
  Weight: 80 kg

DRUGS (1)
  1. TAMSULOSIN HYDROCHLORIDE [Suspect]
     Active Substance: TAMSULOSIN HYDROCHLORIDE
     Indication: Benign prostatic hyperplasia
     Dosage: 0.4 MG, QD,0.4 MG, ONCE DAILY (1X/DAY, AT NIGHT)
     Route: 048
     Dates: start: 20221025, end: 20221031

REACTIONS (4)
  - Penile pain [Recovered/Resolved]
  - Penile curvature [Not Recovered/Not Resolved]
  - Tendon pain [Recovered/Resolved]
  - Peyronie^s disease [Not Recovered/Not Resolved]

NARRATIVE: CASE EVENT DATE: 20221001
